FAERS Safety Report 5245015-9 (Version None)
Quarter: 2007Q1

REPORT INFORMATION
  Report Type: 
  Country: None (occurrence: None)
  Receive Date: 20070223
  Receipt Date: 20070212
  Transmission Date: 20070707
  Serious: Yes (Other)
  Sender: FDA-Public Use
  Company Number: PHEH2007US01985

PATIENT
  Age: 37 Year
  Sex: Female

DRUGS (3)
  1. DIOVAN HCT [Suspect]
     Indication: HYPERTENSION
     Dosage: 160MG VAL/12.5MG HCT, QD
     Route: 048
     Dates: start: 20040101
  2. DIOVAN HCT [Suspect]
     Dosage: 160MG VAL/12.5MG HCT, QD
     Route: 048
  3. ORAL CONTRACEPTIVE NOS [Suspect]
     Indication: MENORRHAGIA

REACTIONS (4)
  - CHEST PAIN [None]
  - DYSPNOEA [None]
  - MENORRHAGIA [None]
  - PRESYNCOPE [None]
